FAERS Safety Report 5521960-1 (Version None)
Quarter: 2007Q4

REPORT INFORMATION
  Report Type: 
  Country: None (occurrence: None)
  Receive Date: 20071120
  Receipt Date: 20070510
  Transmission Date: 20080405
  Serious: No
  Sender: FDA-Public Use
  Company Number: US-BRISTOL-MYERS SQUIBB COMPANY-13775556

PATIENT
  Sex: Male
  Weight: 95 kg

DRUGS (5)
  1. AVALIDE [Suspect]
     Dates: start: 20070301
  2. PROZAC [Concomitant]
  3. TRAMADOL HCL [Concomitant]
  4. VITAMIN B-12 [Concomitant]
  5. ASPIRIN [Concomitant]

REACTIONS (3)
  - COUGH [None]
  - DIARRHOEA [None]
  - RASH [None]
